FAERS Safety Report 4299071-5 (Version None)
Quarter: 2004Q1

REPORT INFORMATION
  Report Type: 
  Country: None (occurrence: None)
  Receive Date: 20040218
  Receipt Date: 20040213
  Transmission Date: 20041129
  Serious: Yes (Death)
  Sender: FDA-Public Use
  Company Number: 04-01-0153

PATIENT
  Age: 61 Year
  Sex: Male

DRUGS (4)
  1. CLOZAPINE [Suspect]
     Indication: DEMENTIA
     Dosage: 100MG QHS ORAL
     Route: 048
     Dates: start: 20030819, end: 20031213
  2. CLOZAPINE [Suspect]
     Indication: HALLUCINATION
     Dosage: 100MG QHS ORAL
     Route: 048
     Dates: start: 20030819, end: 20031213
  3. SINEMET [Concomitant]
  4. SINEMET CR [Concomitant]

REACTIONS (2)
  - BACTERIAL INFECTION [None]
  - SEPSIS [None]
